FAERS Safety Report 6979590-0 (Version None)
Quarter: 2010Q3

REPORT INFORMATION
  Report Type: 
  Country: None (occurrence: None)
  Receive Date: 20100910
  Receipt Date: 20100910
  Transmission Date: 20110219
  Serious: Yes (Death)
  Sender: FDA-Public Use
  Company Number: None

PATIENT
  Age: 70 Year
  Sex: Male
  Weight: 90.9 kg

DRUGS (2)
  1. FLEXERIL [Suspect]
     Indication: MUSCLE SPASMS
     Dosage: 1 DOSE 3XDAY ORAL
     Route: 048
     Dates: start: 20100824, end: 20100825
  2. HYDRACODEINE 500MG UNKNOWN [Suspect]
     Dosage: 1 DOSE EVERY 6 HRS ORAL
     Route: 048

REACTIONS (1)
  - SUDDEN DEATH [None]
